FAERS Safety Report 10229973 (Version 2)
Quarter: 2014Q2

REPORT INFORMATION
  Report Type: Report from Study
  Country: DE (occurrence: DE)
  Receive Date: 20140611
  Receipt Date: 20140613
  Transmission Date: 20141212
  Serious: Yes (Death)
  Sender: FDA-Public Use
  Company Number: DE-SA-2014SA074891

PATIENT
  Age: 77 Year
  Sex: Male
  Weight: 64 kg

DRUGS (5)
  1. JEVTANA [Suspect]
     Indication: PROSTATE CANCER
     Route: 042
     Dates: start: 20131007, end: 20131007
  2. JEVTANA [Suspect]
     Indication: PROSTATE CANCER
     Route: 042
     Dates: start: 20140224, end: 20140224
  3. DEXAMETHASONE [Concomitant]
     Route: 042
     Dates: start: 20131007, end: 20140224
  4. RANITIC [Concomitant]
     Route: 042
     Dates: start: 20131007, end: 20140224
  5. TAVEGIL [Concomitant]
     Route: 042
     Dates: start: 20131007, end: 20140224

REACTIONS (1)
  - Neoplasm progression [Fatal]
